FAERS Safety Report 7392206-7 (Version None)
Quarter: 2011Q2

REPORT INFORMATION
  Report Type: 
  Country: None (occurrence: None)
  Receive Date: 20110404
  Receipt Date: 20110325
  Transmission Date: 20111010
  Serious: Yes (Life-Threatening)
  Sender: FDA-Public Use
  Company Number: B0710217A

PATIENT
  Age: 26 Month
  Sex: Female

DRUGS (1)
  1. SALBUTAMOL [Suspect]
     Route: 065

REACTIONS (3)
  - FATIGUE [None]
  - DRUG INEFFECTIVE [None]
  - SOMNOLENCE [None]
